FAERS Safety Report 9009339 (Version 2)
Quarter: 2013Q1

REPORT INFORMATION
  Report Type: Spontaneous
  Country: US (occurrence: US)
  Receive Date: 20130111
  Receipt Date: 20130215
  Transmission Date: 20140127
  Serious: Yes (Death)
  Sender: FDA-Public Use
  Company Number: US-B.I. PHARMACEUTICALS,INC./RIDGEFIELD-2013-BI-00850YA

PATIENT
  Age: 55 Year
  Sex: Male

DRUGS (8)
  1. TAMSULOSIN CAPSULES [Suspect]
     Route: 065
  2. GABAPENTIN [Suspect]
     Route: 065
  3. ATORVASTATIN [Suspect]
     Route: 065
  4. AMITRIPTYLINE [Suspect]
     Route: 065
  5. MODAFINIL [Suspect]
     Route: 065
  6. TIZANIDINE [Suspect]
     Route: 065
  7. CLONAZEPAM [Suspect]
     Route: 065
  8. NATALIZUMAB [Suspect]
     Route: 065

REACTIONS (1)
  - Completed suicide [Fatal]
